FAERS Safety Report 7525436-1 (Version None)
Quarter: 2011Q2

REPORT INFORMATION
  Report Type: 
  Country: None (occurrence: None)
  Receive Date: 20110606
  Receipt Date: 20110526
  Transmission Date: 20111010
  Serious: Yes (Hospitalization)
  Sender: FDA-Public Use
  Company Number: GB-PFIZER INC-2009254972

PATIENT
  Age: 17 Year
  Sex: Female

DRUGS (1)
  1. SOMATROPIN RDNA [Suspect]
     Dosage: NO DOSE GIVEN

REACTIONS (2)
  - BRAIN NEOPLASM MALIGNANT [None]
  - CONVULSION [None]
